FAERS Safety Report 17822750 (Version 1)
Quarter: 2020Q2

REPORT INFORMATION
  Report Type: Spontaneous
  Country: IT (occurrence: IT)
  Receive Date: 20200526
  Receipt Date: 20200526
  Transmission Date: 20200714
  Serious: Yes (Hospitalization)
  Sender: FDA-Public Use
  Company Number: ALC2020IT003802

PATIENT

DRUGS (1)
  1. ATROPINE. [Suspect]
     Active Substance: ATROPINE
     Indication: PRODUCT USED FOR UNKNOWN INDICATION
     Dosage: DROP 1/12 MILLILITRE
     Route: 047
     Dates: start: 20200509, end: 20200509

REACTIONS (3)
  - Dry mouth [Recovered/Resolved]
  - Somnolence [Recovered/Resolved]
  - Mydriasis [Recovered/Resolved]

NARRATIVE: CASE EVENT DATE: 20200509
